FAERS Safety Report 10672833 (Version 2)
Quarter: 2014Q4

REPORT INFORMATION
  Report Type: Spontaneous
  Country: US (occurrence: US)
  Receive Date: 20141223
  Receipt Date: 20141223
  Transmission Date: 20150529
  Serious: Yes (Death, Hospitalization, Other)
  Sender: FDA-Public Use
  Company Number: US-GILEAD-2014-0122596

PATIENT
  Age: 70 Year
  Sex: Female
  Weight: 49.89 kg

DRUGS (10)
  1. LEVOTHYROXINE [Concomitant]
     Active Substance: LEVOTHYROXINE
  2. CLONIDINE. [Concomitant]
     Active Substance: CLONIDINE
  3. SIMEPREVIR [Concomitant]
     Active Substance: SIMEPREVIR
     Indication: HEPATITIS C
     Route: 065
  4. ALLOPURINOL. [Concomitant]
     Active Substance: ALLOPURINOL
     Dosage: UNK
  5. POTASSIUM [Concomitant]
     Active Substance: POTASSIUM
  6. INDERAL [Concomitant]
     Active Substance: PROPRANOLOL HYDROCHLORIDE
  7. GLYBURIDE. [Concomitant]
     Active Substance: GLYBURIDE
  8. OMEPRAZOLE. [Concomitant]
     Active Substance: OMEPRAZOLE
  9. SOFOSBUVIR [Suspect]
     Active Substance: SOFOSBUVIR
     Indication: HEPATITIS C
     Route: 065
  10. ATORVASTATIN [Concomitant]
     Active Substance: ATORVASTATIN

REACTIONS (11)
  - Diarrhoea [Unknown]
  - Sepsis [Fatal]
  - Rhabdomyolysis [Fatal]
  - Blood creatine phosphokinase increased [Unknown]
  - Confusional state [Unknown]
  - Infection [Unknown]
  - Renal failure [Fatal]
  - Respiratory disorder [Unknown]
  - Thrombotic thrombocytopenic purpura [Fatal]
  - Myositis [Fatal]
  - Asthenia [Unknown]

NARRATIVE: CASE EVENT DATE: 20141104
